FAERS Safety Report 12430369 (Version 1)
Quarter: 2016Q2

REPORT INFORMATION
  Report Type: Spontaneous
  Country: CN (occurrence: CN)
  Receive Date: 20160602
  Receipt Date: 20160602
  Transmission Date: 20160815
  Serious: Yes (Other)
  Sender: FDA-Public Use
  Company Number: CN-ELI_LILLY_AND_COMPANY-CN201605007635

PATIENT
  Sex: Female
  Weight: 51.5 kg

DRUGS (1)
  1. PROZAC [Suspect]
     Active Substance: FLUOXETINE HYDROCHLORIDE
     Indication: DEPRESSION
     Dosage: 20 MG, QD
     Route: 048
     Dates: start: 20150722, end: 20150730

REACTIONS (3)
  - Oedema peripheral [Recovering/Resolving]
  - Blood chloride decreased [Unknown]
  - Blood sodium decreased [Unknown]
